FAERS Safety Report 11837915 (Version 2)
Quarter: 2016Q1

REPORT INFORMATION
  Report Type: Report from Study
  Country: US (occurrence: US)
  Receive Date: 20151215
  Receipt Date: 20160229
  Transmission Date: 20160525
  Serious: Yes (Other)
  Sender: FDA-Public Use
  Company Number: PHHY2013US163367

PATIENT
  Sex: Male
  Weight: 9.98 kg

DRUGS (1)
  1. GILENYA [Suspect]
     Active Substance: FINGOLIMOD HYDROCHLORIDE
     Indication: FOETAL EXPOSURE DURING PREGNANCY
     Dosage: MATERNAL DOSE: 0.5 MG QD
     Route: 064
     Dates: start: 20120325, end: 20121103

REACTIONS (2)
  - Foetal exposure during pregnancy [Unknown]
  - Weight abnormal [Recovered/Resolved with Sequelae]

NARRATIVE: CASE EVENT DATE: 20130704
